FAERS Safety Report 20188802 (Version 2)
Quarter: 2022Q1

REPORT INFORMATION
  Report Type: Spontaneous
  Country: US (occurrence: US)
  Receive Date: 20211215
  Receipt Date: 20220112
  Transmission Date: 20220424
  Serious: Yes (Other)
  Sender: FDA-Public Use
  Company Number: US-GW PHARMA-202112USGW06097

PATIENT

DRUGS (3)
  1. EPIDIOLEX [Suspect]
     Active Substance: CANNABIDIOL
     Indication: Partial seizures
     Dosage: 700 MILLIGRAM
     Route: 048
     Dates: start: 202109
  2. EPIDIOLEX [Suspect]
     Active Substance: CANNABIDIOL
     Indication: Idiopathic partial epilepsy
  3. EPIDIOLEX [Suspect]
     Active Substance: CANNABIDIOL
     Indication: Status epilepticus

REACTIONS (9)
  - Seizure [Unknown]
  - Emotional distress [Unknown]
  - Ammonia increased [Unknown]
  - Hepatic enzyme increased [Unknown]
  - Anger [Unknown]
  - Abnormal behaviour [Unknown]
  - Insomnia [Not Recovered/Not Resolved]
  - Aggression [Unknown]
  - Product use in unapproved indication [Unknown]

NARRATIVE: CASE EVENT DATE: 20210101
